FAERS Safety Report 26208037 (Version 1)
Quarter: 2025Q4

REPORT INFORMATION
  Report Type: Spontaneous
  Country: US (occurrence: None)
  Receive Date: 20251225
  Receipt Date: 20251225
  Transmission Date: 20260118
  Serious: Yes (Hospitalization)
  Sender: FDA-CTU
  Company Number: None

PATIENT
  Age: 43 Year
  Sex: Female
  Weight: 91.2 kg

DRUGS (5)
  1. OLAPARIB [Suspect]
     Active Substance: OLAPARIB
     Dates: end: 20251217
  2. TAXOL [Suspect]
     Active Substance: PACLITAXEL
  3. CARBOPLATIN [Suspect]
     Active Substance: CARBOPLATIN
  4. PREDNISONE [Concomitant]
     Active Substance: PREDNISONE
  5. TACROLIMUS [Concomitant]
     Active Substance: TACROLIMUS

REACTIONS (11)
  - Headache [None]
  - Dizziness [None]
  - Back pain [None]
  - Urine output decreased [None]
  - Hypophagia [None]
  - Acute kidney injury [None]
  - Urinary tract infection [None]
  - Hyponatraemia [None]
  - Hypomagnesaemia [None]
  - Nephropathy toxic [None]
  - Pancytopenia [None]

NARRATIVE: CASE EVENT DATE: 20251217
